FAERS Safety Report 8021865-0 (Version None)
Quarter: 2011Q4

REPORT INFORMATION
  Report Type: 
  Country: None (occurrence: None)
  Receive Date: 20111230
  Receipt Date: 20111213
  Transmission Date: 20120403
  Serious: Yes (Hospitalization, Other)
  Sender: FDA-Public Use
  Company Number: JPI-P-013408

PATIENT
  Age: 49 Year
  Sex: Male
  Weight: 81.6475 kg

DRUGS (9)
  1. TRIAMCINOLONE ACETONIDE [Concomitant]
  2. XYREM [Suspect]
     Indication: CATAPLEXY
     Dosage: SEE IMAGE
     Route: 048
     Dates: start: 20110722
  3. XYREM [Suspect]
     Indication: CATAPLEXY
     Dosage: SEE IMAGE
     Route: 048
     Dates: start: 20070726, end: 20080904
  4. XYREM [Suspect]
     Indication: CATAPLEXY
     Dosage: SEE IMAGE
     Route: 048
     Dates: start: 20080905
  5. TESTOSTERONE [Suspect]
     Indication: BLOOD TESTOSTERONE DECREASED
     Dosage: (1 DOSAGE FORMS), (2 DOSAGE FORMS)
     Dates: start: 20101101
  6. TESTOSTERONE [Suspect]
     Indication: BLOOD TESTOSTERONE DECREASED
     Dosage: (1 DOSAGE FORMS), (2 DOSAGE FORMS)
     Dates: end: 20101101
  7. AMPHETAMINE DEXTROAMPHETAMINE MIXED SALTS [Concomitant]
  8. CICLESONIDE [Concomitant]
  9. LITHIUM [Concomitant]

REACTIONS (18)
  - SOMNAMBULISM [None]
  - INSOMNIA [None]
  - EMOTIONAL DISORDER [None]
  - ABNORMAL BEHAVIOUR [None]
  - URINARY INCONTINENCE [None]
  - INAPPROPRIATE SCHEDULE OF DRUG ADMINISTRATION [None]
  - SELF INJURIOUS BEHAVIOUR [None]
  - DRUG WITHDRAWAL SYNDROME [None]
  - AGGRESSION [None]
  - PSYCHOTIC DISORDER [None]
  - CRYING [None]
  - CONDITION AGGRAVATED [None]
  - DELUSION [None]
  - OVERDOSE [None]
  - DRUG DOSE OMISSION [None]
  - HALLUCINATION [None]
  - NARCOLEPSY [None]
  - GASTROOESOPHAGEAL REFLUX DISEASE [None]
